FAERS Safety Report 21493843 (Version 2)
Quarter: 2022Q4

REPORT INFORMATION
  Report Type: Report from Study
  Country: US (occurrence: US)
  Receive Date: 20221021
  Receipt Date: 20221128
  Transmission Date: 20230112
  Serious: No
  Sender: FDA-Public Use
  Company Number: US-BIOVITRUM-2022US11757

PATIENT
  Sex: Female

DRUGS (10)
  1. KINERET [Suspect]
     Active Substance: ANAKINRA
     Indication: Product used for unknown indication
     Dates: start: 20221005, end: 20221011
  2. ACTEMRA [Concomitant]
     Active Substance: TOCILIZUMAB
  3. Levothyorixine [Concomitant]
  4. FAMOTIDINE [Concomitant]
     Active Substance: FAMOTIDINE
  5. FUROSEMIDE [Concomitant]
     Active Substance: FUROSEMIDE
  6. TRAMADOL [Concomitant]
     Active Substance: TRAMADOL
  7. PREDNISONE [Concomitant]
     Active Substance: PREDNISONE
  8. LORATADINE [Concomitant]
     Active Substance: LORATADINE
  9. MOMETASONE FUROATE [Concomitant]
     Active Substance: MOMETASONE FUROATE
  10. PROAIR HFA [Concomitant]
     Active Substance: ALBUTEROL SULFATE

REACTIONS (4)
  - Abdominal discomfort [Recovered/Resolved]
  - Mood swings [Recovered/Resolved]
  - Malaise [Recovered/Resolved]
  - Chest discomfort [Recovered/Resolved]
